FAERS Safety Report 15579453 (Version 1)
Quarter: 2018Q4

REPORT INFORMATION
  Report Type: Spontaneous
  Country: DE (occurrence: DE)
  Receive Date: 20181102
  Receipt Date: 20181102
  Transmission Date: 20190205
  Serious: Yes (Other)
  Sender: FDA-Public Use
  Company Number: DE-009507513-1811DEU000834

PATIENT
  Age: 31 Year
  Sex: Male

DRUGS (2)
  1. TEMOZOLOMIDE. [Suspect]
     Active Substance: TEMOZOLOMIDE
     Dosage: 150 MG/M? BODY SURFACE, FIVE DAYS PER WEEK FOR THE IRRADIATION PERIOD, FOLLOWED BY A THREE WEEK OFF/
  2. TEMOZOLOMIDE. [Suspect]
     Active Substance: TEMOZOLOMIDE
     Indication: GLIOBLASTOMA
     Dosage: 75 MG/M? BODY SURFACE

REACTIONS (1)
  - Malignant neoplasm progression [Unknown]
